FAERS Safety Report 7859683-6 (Version None)
Quarter: 2011Q4

REPORT INFORMATION
  Report Type: 
  Country: None (occurrence: None)
  Receive Date: 20111027
  Receipt Date: 20111014
  Transmission Date: 20120403
  Serious: Yes (Other)
  Sender: FDA-Public Use
  Company Number: JP-SANOFI-AVENTIS-2011SA068029

PATIENT
  Age: 64 Year
  Sex: Male

DRUGS (2)
  1. ALLEGRA [Suspect]
     Indication: RHINITIS ALLERGIC
     Route: 048
     Dates: start: 20111004, end: 20111014
  2. ONON [Concomitant]
     Dates: end: 20111014

REACTIONS (1)
  - URINARY TRACT OBSTRUCTION [None]
